FAERS Safety Report 4746562-6 (Version None)
Quarter: 2005Q3

REPORT INFORMATION
  Report Type: 
  Country: None (occurrence: None)
  Receive Date: 20050816
  Receipt Date: 20050816
  Transmission Date: 20060218
  Serious: No
  Sender: FDA-Public Use
  Company Number: None

PATIENT
  Age: 45 Year
  Sex: Female
  Weight: 95.2554 kg

DRUGS (1)
  1. ZOCOR [Suspect]
     Indication: HYPERLIPIDAEMIA
     Dosage: 40 MG  PO QD
     Route: 048
     Dates: start: 20050701

REACTIONS (3)
  - ASTHENIA [None]
  - DRUG INTOLERANCE [None]
  - MYALGIA [None]
